FAERS Safety Report 7617914-1 (Version None)
Quarter: 2011Q3

REPORT INFORMATION
  Report Type: 
  Country: None (occurrence: None)
  Receive Date: 20110718
  Receipt Date: 20110702
  Transmission Date: 20111222
  Serious: Yes (Other)
  Sender: FDA-Public Use
  Company Number: PHHY2010MX69720

PATIENT
  Sex: Female

DRUGS (4)
  1. DIOVAN HCT [Suspect]
     Indication: HYPERTENSION
     Dosage: 160/25 MG (1 TABLET PER DAY)
     Route: 048
     Dates: start: 20050801
  2. DIOVAN HCT [Suspect]
     Dosage: 0.5 DF (160 MG VALSARTAN/ 25 MG HYDROCHLOROTHIAZIDE)
  3. SINGULAIR [Concomitant]
     Indication: ASTHMA
     Dosage: UNK
     Dates: start: 20110702
  4. SERETIDE [Concomitant]
     Indication: ASTHMA
     Dosage: UNK

REACTIONS (5)
  - CARDIAC MURMUR [None]
  - ANXIETY [None]
  - BLOOD PRESSURE INCREASED [None]
  - ARRHYTHMIA [None]
  - WRONG TECHNIQUE IN DRUG USAGE PROCESS [None]
